FAERS Safety Report 9765037 (Version 2)
Quarter: 2014Q1

REPORT INFORMATION
  Report Type: Report from Study
  Country: IE (occurrence: IE)
  Receive Date: 20131217
  Receipt Date: 20140131
  Transmission Date: 20141002
  Serious: Yes (Hospitalization)
  Sender: FDA-Public Use
  Company Number: IE-ROCHE-1314590

PATIENT
  Age: 46 Year
  Sex: Female
  Weight: 36.8 kg

DRUGS (1)
  1. TRASTUZUMAB EMTANSINE [Suspect]
     Indication: BREAST CANCER METASTATIC
     Dosage: LAST DOSE PRIOR TO SAE 29/NOV/2013
     Route: 042
     Dates: start: 20131129

REACTIONS (1)
  - Renal failure acute [Not Recovered/Not Resolved]
